FAERS Safety Report 24803512 (Version 1)
Quarter: 2025Q1

REPORT INFORMATION
  Report Type: Spontaneous
  Country: CA (occurrence: CA)
  Receive Date: 20250103
  Receipt Date: 20250103
  Transmission Date: 20250409
  Serious: Yes (Life-Threatening)
  Sender: TEVA
  Company Number: CA-TEVA-VS-3282646

PATIENT
  Age: 40 Year
  Sex: Female

DRUGS (1)
  1. PACLITAXEL [Suspect]
     Active Substance: PACLITAXEL
     Indication: Product used for unknown indication
     Route: 042

REACTIONS (5)
  - Hypersensitivity [Recovered/Resolved]
  - Cardiovascular symptom [Recovered/Resolved]
  - Cutaneous symptom [Recovered/Resolved]
  - Anaphylactic reaction [Recovered/Resolved]
  - Gastrointestinal disorder [Recovered/Resolved]
